FAERS Safety Report 11645449 (Version 1)
Quarter: 2015Q4

REPORT INFORMATION
  Report Type: Spontaneous
  Country: FR (occurrence: FR)
  Receive Date: 20151020
  Receipt Date: 20151020
  Transmission Date: 20160304
  Serious: Yes (Hospitalization)
  Sender: FDA-Public Use
  Company Number: PHHY2015FR125041

PATIENT
  Age: 40 Year
  Sex: Female

DRUGS (1)
  1. RIAMET [Suspect]
     Active Substance: ARTEMETHER\LUMEFANTRINE
     Indication: PLASMODIUM FALCIPARUM INFECTION
     Dosage: UNK
     Route: 048
     Dates: start: 20150705, end: 20150708

REACTIONS (1)
  - Haemolytic anaemia [Not Recovered/Not Resolved]

NARRATIVE: CASE EVENT DATE: 20150726
